FAERS Safety Report 16433357 (Version 1)
Quarter: 2019Q2

REPORT INFORMATION
  Report Type: Spontaneous
  Country: US (occurrence: US)
  Receive Date: 20190614
  Receipt Date: 20190614
  Transmission Date: 20190711
  Serious: No
  Sender: FDA-Public Use
  Company Number: US-JNJFOC-20190529884

PATIENT
  Age: 58 Year
  Sex: Female
  Weight: 61.69 kg

DRUGS (3)
  1. STELARA [Suspect]
     Active Substance: USTEKINUMAB
     Indication: CROHN^S DISEASE
     Route: 058
     Dates: start: 201903
  2. IMURAN [Concomitant]
     Active Substance: AZATHIOPRINE
     Route: 065
  3. PROMETHAZINE [Concomitant]
     Active Substance: PROMETHAZINE\PROMETHAZINE HYDROCHLORIDE
     Route: 065

REACTIONS (6)
  - Tooth extraction [Unknown]
  - Product use complaint [Unknown]
  - Infection [Unknown]
  - Exposed bone in jaw [Unknown]
  - Product dose omission [Unknown]
  - Mouth ulceration [Unknown]

NARRATIVE: CASE EVENT DATE: 20190521
